FAERS Safety Report 8539087-3 (Version None)
Quarter: 2012Q3

REPORT INFORMATION
  Report Type: 
  Country: None (occurrence: None)
  Receive Date: 20120713
  Receipt Date: 20090831
  Transmission Date: 20120928
  Serious: Yes (Other)
  Sender: FDA-Public Use
  Company Number: 2009AP003516

PATIENT
  Age: 58 Year
  Sex: Female

DRUGS (26)
  1. LOSARTAN POTASSIUM [Concomitant]
  2. ESTRADIOL [Concomitant]
  3. CALCIUM CITRATE [Concomitant]
  4. ETANERCEPT [Concomitant]
  5. TEMAZEPAM [Concomitant]
  6. DILTIAZEM HCL [Concomitant]
  7. WARFARIN SODIUM [Concomitant]
  8. ERGOCALCIFEROL [Concomitant]
  9. LANTUS [Concomitant]
  10. PREDNISOLONE [Concomitant]
  11. METHOTREXATE [Concomitant]
  12. FERROUS SULFATE TAB [Concomitant]
  13. CHROMIUM PICOLINATE [Concomitant]
  14. HYDROCODONE [Concomitant]
  15. ACETAMINOPHEN [Concomitant]
  16. TRAMADOL HYDROCHLORIDE [Concomitant]
  17. SERTRALINE HYDROCHLORIDE [Concomitant]
  18. MAGNESIUM [Concomitant]
  19. FOLIC ACID [Concomitant]
  20. DILT-CD [Suspect]
     Indication: OFF LABEL USE
     Dosage: 120 MG;TID; 120 MG; 1ID
     Dates: start: 20090502
  21. DILT-CD [Suspect]
     Indication: ATRIAL FIBRILLATION
     Dosage: 120 MG;TID; 120 MG; 1ID
     Dates: start: 20090502
  22. FUROSEMIDE [Concomitant]
  23. MODAFINIL [Concomitant]
  24. AMITRIPTYLINE HCL [Concomitant]
  25. FLINSTONES MULTIPLE VITAMINS [Concomitant]
  26. CYANOCOBALAMIN [Concomitant]

REACTIONS (8)
  - ATRIAL FIBRILLATION [None]
  - DRUG INEFFECTIVE [None]
  - OFF LABEL USE [None]
  - CARDIAC PACEMAKER REPLACEMENT [None]
  - CONDITION AGGRAVATED [None]
  - PRODUCT SUBSTITUTION ISSUE [None]
  - WRONG TECHNIQUE IN DRUG USAGE PROCESS [None]
  - PRODUCT QUALITY ISSUE [None]
